FAERS Safety Report 17894162 (Version 1)
Quarter: 2020Q2

REPORT INFORMATION
  Report Type: Spontaneous
  Country: US (occurrence: US)
  Receive Date: 20200615
  Receipt Date: 20200615
  Transmission Date: 20200714
  Serious: No
  Sender: FDA-Public Use
  Company Number: US-GW PHARMA-202006USGW02104

PATIENT

DRUGS (1)
  1. EPIDIOLEX [Suspect]
     Active Substance: CANNABIDIOL
     Indication: LENNOX-GASTAUT SYNDROME
     Dosage: 1500 MILLIGRAM, BID
     Dates: start: 20191224, end: 202004

REACTIONS (4)
  - Short-bowel syndrome [Unknown]
  - Skin haemorrhage [Unknown]
  - Diarrhoea [Unknown]
  - Skin disorder [Unknown]
